FAERS Safety Report 6491644-4 (Version None)
Quarter: 2009Q4

REPORT INFORMATION
  Report Type: 
  Country: None (occurrence: None)
  Receive Date: 20091125
  Receipt Date: 20090506
  Transmission Date: 20100525
  Serious: Yes (Hospitalization, Other)
  Sender: FDA-Public Use
  Company Number: 2009BH008144

PATIENT
  Age: 83 Year
  Sex: Male
  Weight: 84.3 kg

DRUGS (2)
  1. DIANEAL [Suspect]
     Indication: RENAL FAILURE CHRONIC
     Dosage: ; UNK ; IP
     Route: 033
     Dates: end: 20090501
  2. DIANEAL [Suspect]
     Indication: RENAL FAILURE CHRONIC
     Dosage: ; UNK ; IP
     Route: 033
     Dates: end: 20090501

REACTIONS (3)
  - DEVICE RELATED INFECTION [None]
  - PERITONITIS [None]
  - PYREXIA [None]
